FAERS Safety Report 7940314-1 (Version None)
Quarter: 2011Q4

REPORT INFORMATION
  Report Type: 
  Country: None (occurrence: None)
  Receive Date: 20111126
  Receipt Date: 20110925
  Transmission Date: 20120403
  Serious: No
  Sender: FDA-Public Use
  Company Number: US-BAYER-2011-092983

PATIENT
  Sex: Female

DRUGS (2)
  1. ALEVE (CAPLET) [Suspect]
     Indication: ARTHRALGIA
     Dosage: 3 DF, ONCE
     Dates: start: 20110925
  2. ALEVE (CAPLET) [Suspect]
     Indication: DYSMENORRHOEA

REACTIONS (2)
  - ARTHRALGIA [None]
  - DYSMENORRHOEA [None]
